FAERS Safety Report 9324035 (Version 1)
Quarter: 2013Q2

REPORT INFORMATION
  Report Type: Report from Study
  Country: JP (occurrence: JP)
  Receive Date: 20130603
  Receipt Date: 20130603
  Transmission Date: 20140414
  Serious: Yes (Death)
  Sender: FDA-Public Use
  Company Number: JP-VERTEX PHARMACEUTICALS INC-2013-006603

PATIENT
  Age: 68 Year
  Sex: Female

DRUGS (6)
  1. VX-950 (TELAPREVIR) [Suspect]
     Indication: CHRONIC HEPATITIS C
     Dosage: 1500 MG, QD
     Route: 048
     Dates: start: 20120615, end: 20120623
  2. VX-950 (TELAPREVIR) [Suspect]
     Dosage: 1500 MG, QD
     Route: 048
     Dates: start: 20120625, end: 20120906
  3. RIBAVIRIN [Concomitant]
     Dosage: 600 MG, QD
     Route: 048
     Dates: start: 20120615, end: 20120623
  4. RIBAVIRIN [Concomitant]
     Dosage: 600 MG, QD
     Route: 048
     Dates: start: 20120625, end: 20121202
  5. PEGINTERFERON ALFA-2B [Concomitant]
     Dosage: 1.5 MG/KG, WEEKLY
     Route: 058
     Dates: start: 20120615, end: 20121127
  6. URSO [Concomitant]
     Dosage: 600 MG, QD
     Route: 048

REACTIONS (1)
  - Bone cancer metastatic [Fatal]
